FAERS Safety Report 16946760 (Version 2)
Quarter: 2019Q4

REPORT INFORMATION
  Report Type: Spontaneous
  Country: US (occurrence: US)
  Receive Date: 20191022
  Receipt Date: 20191025
  Transmission Date: 20200122
  Serious: No
  Sender: FDA-Public Use
  Company Number: US-PFIZER INC-2019454059

PATIENT
  Age: 57 Year
  Sex: Male
  Weight: 128.3 kg

DRUGS (2)
  1. CHANTIX [Suspect]
     Active Substance: VARENICLINE TARTRATE
     Indication: SMOKING CESSATION THERAPY
     Dosage: 1 MG, UNK (56 TABLETS FOR 6 WEEKS)
     Dates: end: 201909
  2. STIOLTO RESPIMAT [Concomitant]
     Active Substance: OLODATEROL HYDROCHLORIDE\TIOTROPIUM BROMIDE MONOHYDRATE
     Indication: LUNG DISORDER
     Dosage: 2 PUFFS, DAILY
     Dates: start: 2017

REACTIONS (7)
  - Weight increased [Unknown]
  - Parosmia [Unknown]
  - Nasal pruritus [Unknown]
  - Hypersensitivity [Unknown]
  - Taste disorder [Unknown]
  - Depression [Unknown]
  - Intentional dose omission [Unknown]

NARRATIVE: CASE EVENT DATE: 2019
